FAERS Safety Report 24997131 (Version 1)
Quarter: 2025Q1

REPORT INFORMATION
  Report Type: Other
  Country: AU (occurrence: AU)
  Receive Date: 20250221
  Receipt Date: 20250221
  Transmission Date: 20250408
  Serious: Yes (Other)
  Sender: B BRAUN
  Company Number: AU-B.Braun Medical Inc.-2171569

PATIENT
  Age: 64 Year
  Sex: Male

DRUGS (4)
  1. ACETAMINOPHEN [Suspect]
     Active Substance: ACETAMINOPHEN
     Indication: Suicide attempt
  2. TELMISARTAN [Suspect]
     Active Substance: TELMISARTAN
  3. WARFARIN [Suspect]
     Active Substance: WARFARIN
  4. METOPROLOL [Suspect]
     Active Substance: METOPROLOL

REACTIONS (5)
  - Intentional overdose [Unknown]
  - Agitation [Unknown]
  - International normalised ratio increased [Unknown]
  - Blood creatinine increased [Unknown]
  - Toxicity to various agents [Unknown]
